FAERS Safety Report 15265439 (Version 2)
Quarter: 2018Q3

REPORT INFORMATION
  Report Type: Spontaneous
  Country: US (occurrence: US)
  Receive Date: 20180810
  Receipt Date: 20180928
  Transmission Date: 20181010
  Serious: Yes (Other)
  Sender: FDA-Public Use
  Company Number: US-PURDUE-USA-2018-0144392

PATIENT
  Sex: Female
  Weight: 190 kg

DRUGS (1)
  1. PERI?COLACE [Suspect]
     Active Substance: CASANTHRANOL\DOCUSATE SODIUM
     Indication: CONSTIPATION
     Dosage: UNK, PRN
     Route: 048
     Dates: start: 2003, end: 2018

REACTIONS (3)
  - Retinal disorder [Not Recovered/Not Resolved]
  - Constipation [Recovered/Resolved]
  - Arthritis [Not Recovered/Not Resolved]
